FAERS Safety Report 10073303 (Version 1)
Quarter: 2014Q2

REPORT INFORMATION
  Report Type: Spontaneous
  Country: US (occurrence: US)
  Receive Date: 20140411
  Receipt Date: 20140411
  Transmission Date: 20141212
  Serious: Yes (Hospitalization)
  Sender: FDA-Public Use
  Company Number: US-TEVA-473806USA

PATIENT
  Age: 35 Year
  Sex: Male
  Weight: 70.37 kg

DRUGS (14)
  1. COPAXONE [Suspect]
     Indication: MULTIPLE SCLEROSIS
     Dosage: 20 MILLIGRAM DAILY;
     Route: 058
  2. AVONEX [Concomitant]
     Dosage: 4.2857 MICROGRAM DAILY;
     Route: 030
     Dates: start: 20010816
  3. ALBUTEROL [Concomitant]
  4. IPRATROPIUM [Concomitant]
  5. ENOXAPARIN [Concomitant]
     Dosage: 40 MILLIGRAM DAILY;
  6. HYDROCORTISONE [Concomitant]
     Dosage: 1500 MILLIGRAM DAILY;
  7. LACTOBACILLUS [Concomitant]
  8. PANTOPRAZOLE [Concomitant]
  9. ZOSYN [Concomitant]
  10. SENNA [Concomitant]
  11. FLUCONAZOLE [Concomitant]
  12. TYLENOL [Concomitant]
  13. FLOMAX [Concomitant]
     Dosage: .4 MILLIGRAM DAILY;
     Route: 048
  14. CULTURELLE [Concomitant]

REACTIONS (2)
  - Pneumonia aspiration [Unknown]
  - Hypoxia [Unknown]
